FAERS Safety Report 9105251 (Version 1)
Quarter: 2013Q1

REPORT INFORMATION
  Report Type: Spontaneous
  Country: US (occurrence: US)
  Receive Date: 20130220
  Receipt Date: 20130220
  Transmission Date: 20140127
  Serious: Yes (Other)
  Sender: FDA-Public Use
  Company Number: US-GLAXOSMITHKLINE-A1006145A

PATIENT
  Sex: Female

DRUGS (3)
  1. VOTRIENT [Suspect]
     Indication: METASTASES TO LUNG
     Dosage: 800MG PER DAY
     Route: 048
     Dates: start: 20121209
  2. PHENERGAN [Concomitant]
     Indication: NAUSEA
  3. OXYGEN [Concomitant]

REACTIONS (7)
  - Myocardial infarction [Unknown]
  - Nausea [Not Recovered/Not Resolved]
  - Gastroenteritis viral [Unknown]
  - Bed rest [Unknown]
  - Dyspnoea [Not Recovered/Not Resolved]
  - Dysgeusia [Unknown]
  - Palpitations [Unknown]
